FAERS Safety Report 5108392-5 (Version None)
Quarter: 2006Q3

REPORT INFORMATION
  Report Type: 
  Country: None (occurrence: None)
  Receive Date: 20060919
  Receipt Date: 20060831
  Transmission Date: 20061208
  Serious: Yes (Life-Threatening)
  Sender: FDA-Public Use
  Company Number: US-BOEHRINGER INGELHEIM PHARMACEUTICALS, INC.-2006-BP-10301BP

PATIENT
  Sex: Female

DRUGS (2)
  1. AGGRENOX [Suspect]
     Indication: VASCULAR SHUNT
     Dates: start: 20050908, end: 20060410
  2. PLACEBO CAPSULES (BLIND) [Suspect]
     Indication: VASCULAR SHUNT
     Dates: start: 20050908, end: 20060410

REACTIONS (12)
  - COLON CANCER [None]
  - DIVERTICULUM [None]
  - HAEMATOCRIT DECREASED [None]
  - HAEMODIALYSIS [None]
  - HAEMOGLOBIN DECREASED [None]
  - HYPOTENSION [None]
  - LARGE INTESTINE PERFORATION [None]
  - LEUKOCYTOSIS [None]
  - LUNG NEOPLASM MALIGNANT [None]
  - MENTAL STATUS CHANGES [None]
  - MOBILITY DECREASED [None]
  - SARCOMA [None]
